FAERS Safety Report 6444921-7 (Version None)
Quarter: 2009Q4

REPORT INFORMATION
  Report Type: 
  Country: None (occurrence: None)
  Receive Date: 20091117
  Receipt Date: 20091117
  Transmission Date: 20100525
  Serious: Yes (Other)
  Sender: FDA-Public Use
  Company Number: None

PATIENT
  Age: 70 Year
  Sex: Male
  Weight: 74.8435 kg

DRUGS (1)
  1. TOPIRAMATE 25 MG TEVA USA [Suspect]
     Indication: HEADACHE
     Dosage: 5 TABLETS AT BEDTIME ONCE DAILY PO
     Route: 048
     Dates: start: 20090703, end: 20091115

REACTIONS (2)
  - CONVULSION [None]
  - HEADACHE [None]
